FAERS Safety Report 15004778 (Version 1)
Quarter: 2018Q2

REPORT INFORMATION
  Report Type: Spontaneous
  Country: IT (occurrence: IT)
  Receive Date: 20180613
  Receipt Date: 20180613
  Transmission Date: 20180711
  Serious: Yes (Other)
  Sender: FDA-Public Use
  Company Number: IT-AUROBINDO-AUR-APL-2018-030542

PATIENT
  Age: 48 Year
  Sex: Male

DRUGS (1)
  1. LEVOFLOXACIN FILMCOATED TABLET [Suspect]
     Active Substance: LEVOFLOXACIN
     Indication: URINARY TRACT INFECTION
     Dosage: 1 DOSAGE FORM 1 TOTAL
     Route: 048
     Dates: start: 20140310, end: 20140310

REACTIONS (4)
  - Hypersensitivity [Recovering/Resolving]
  - Lip oedema [Recovering/Resolving]
  - Throat tightness [Recovering/Resolving]
  - Eyelid oedema [Recovering/Resolving]

NARRATIVE: CASE EVENT DATE: 20140310
